FAERS Safety Report 8559271-2 (Version None)
Quarter: 2012Q3

REPORT INFORMATION
  Report Type: 
  Country: None (occurrence: None)
  Receive Date: 20120802
  Receipt Date: 20120726
  Transmission Date: 20120928
  Serious: Yes (Hospitalization, Other)
  Sender: FDA-Public Use
  Company Number: PHHY2012BR065169

PATIENT
  Sex: Female
  Weight: 73 kg

DRUGS (3)
  1. FORMOTEROL FUMARATE [Suspect]
     Indication: ASTHMA
     Dosage: 1 DF, Q12H
     Dates: start: 20110101, end: 20120701
  2. SPIRIVA [Suspect]
     Indication: ASTHMA
     Dosage: 2.5 MG, QD
  3. LOSARTAN POTASSIUM [Concomitant]
     Indication: BLOOD PRESSURE
     Dosage: 50 MG, DAILY
     Route: 048
     Dates: start: 20110101

REACTIONS (5)
  - SWELLING [None]
  - FATIGUE [None]
  - INFLUENZA [None]
  - THYROID DISORDER [None]
  - LUNG INFECTION [None]
